FAERS Safety Report 13100483 (Version 1)
Quarter: 2017Q1

REPORT INFORMATION
  Report Type: Spontaneous
  Country: US (occurrence: US)
  Receive Date: 20170109
  Receipt Date: 20170109
  Transmission Date: 20170428
  Serious: Yes (Disabling)
  Sender: FDA-Public Use
  Company Number: None

PATIENT
  Age: 36 Year
  Sex: Female
  Weight: 63 kg

DRUGS (4)
  1. EPSOM SALT BATHS [Concomitant]
  2. DEXTROAMPHET SACCHARAT, AMPHET ASPARTATE, DEXTROAMPHET SULFATE AND AMPHET SULFAT [Suspect]
     Active Substance: AMPHETAMINE ASPARTATE\AMPHETAMINE SULFATE\DEXTROAMPHETAMINE SACCHARATE\DEXTROAMPHETAMINE SULFATE
     Indication: ATTENTION DEFICIT/HYPERACTIVITY DISORDER
     Dosage: QUANTITY:60 TABLET(S); TWICE A DAY; ORAL?
     Route: 048
     Dates: start: 20161108, end: 20170109
  3. MULTIVITAMIN [Concomitant]
     Active Substance: VITAMINS
  4. PROBIOTICS [Concomitant]
     Active Substance: PROBIOTICS NOS

REACTIONS (4)
  - Fatigue [None]
  - Headache [None]
  - Myalgia [None]
  - Drug effect decreased [None]

NARRATIVE: CASE EVENT DATE: 20161213
